FAERS Safety Report 23698989 (Version 1)
Quarter: 2024Q2

REPORT INFORMATION
  Report Type: Spontaneous
  Country: US (occurrence: None)
  Receive Date: 20240402
  Receipt Date: 20240402
  Transmission Date: 20240715
  Serious: Yes (Hospitalization)
  Sender: FDA-Public Use
  Company Number: None

PATIENT
  Age: 71 Year
  Sex: Male
  Weight: 104.5 kg

DRUGS (2)
  1. SPRYCEL [Suspect]
     Active Substance: DASATINIB
     Dates: end: 20240110
  2. VINCRISTINE SULFATE [Suspect]
     Active Substance: VINCRISTINE SULFATE
     Dates: end: 20240102

REACTIONS (5)
  - Dyspnoea exertional [None]
  - Oedema peripheral [None]
  - Orthopnoea [None]
  - Pulmonary congestion [None]
  - Pulmonary vascular disorder [None]

NARRATIVE: CASE EVENT DATE: 20240118
